FAERS Safety Report 10971676 (Version 1)
Quarter: 2015Q1

REPORT INFORMATION
  Report Type: Spontaneous
  Country: CH (occurrence: CH)
  Receive Date: 20150331
  Receipt Date: 20150331
  Transmission Date: 20150721
  Serious: Yes (Hospitalization)
  Sender: FDA-Public Use
  Company Number: CH-009507513-1503CHE014200

PATIENT
  Age: 16 Year
  Sex: Female

DRUGS (1)
  1. TRYPTIZOL [Suspect]
     Active Substance: AMITRIPTYLINE HYDROCHLORIDE
     Dosage: 200 MG (UP TO 20 DOSE UNITS), ONCE
     Route: 048
     Dates: start: 20150116, end: 20150116

REACTIONS (7)
  - Poisoning [Recovered/Resolved]
  - Miosis [Recovered/Resolved]
  - Dizziness [Recovered/Resolved]
  - Intentional overdose [Unknown]
  - Somnolence [Recovered/Resolved]
  - Syncope [Recovered/Resolved]
  - Consciousness fluctuating [Recovered/Resolved]

NARRATIVE: CASE EVENT DATE: 20150116
